FAERS Safety Report 8244909-X (Version None)
Quarter: 2012Q1

REPORT INFORMATION
  Report Type: 
  Country: None (occurrence: None)
  Receive Date: 20120329
  Receipt Date: 20110901
  Transmission Date: 20120608
  Serious: No
  Sender: FDA-Public Use
  Company Number: US-MYLANLABS-2011S1018498

PATIENT
  Sex: Male

DRUGS (1)
  1. FENTANYL-100 [Suspect]
     Indication: PAIN
     Dosage: CHANGED Q48H
     Route: 062

REACTIONS (5)
  - HYPERHIDROSIS [None]
  - PAIN [None]
  - FEELING COLD [None]
  - DRUG EFFECT DECREASED [None]
  - COLD SWEAT [None]
